FAERS Safety Report 11222295 (Version 1)
Quarter: 2015Q2

REPORT INFORMATION
  Report Type: Spontaneous
  Country: ES (occurrence: ES)
  Receive Date: 20150626
  Receipt Date: 20150626
  Transmission Date: 20150821
  Serious: Yes (Other)
  Sender: FDA-Public Use
  Company Number: ES-JNJFOC-20150619825

PATIENT
  Age: 56 Year
  Sex: Female

DRUGS (1)
  1. PAZITAL [Suspect]
     Active Substance: ACETAMINOPHEN\TRAMADOL HYDROCHLORIDE
     Indication: HERNIA
     Route: 048
     Dates: start: 20150428, end: 2015

REACTIONS (3)
  - Nightmare [Recovered/Resolved]
  - Middle insomnia [Recovered/Resolved]
  - Hallucination [Recovered/Resolved]

NARRATIVE: CASE EVENT DATE: 20150428
